FAERS Safety Report 18191039 (Version 2)
Quarter: 2021Q1

REPORT INFORMATION
  Report Type: Report from Study
  Country: US (occurrence: US)
  Receive Date: 20200825
  Receipt Date: 20210106
  Transmission Date: 20210419
  Serious: Yes (Life-Threatening, Hospitalization, Other)
  Sender: FDA-Public Use
  Company Number: US-BRISTOL-MYERS SQUIBB COMPANY-BMS-2020-066087

PATIENT
  Sex: Female

DRUGS (1)
  1. WARFARIN SODIUM. [Suspect]
     Active Substance: WARFARIN SODIUM
     Indication: PRODUCT USED FOR UNKNOWN INDICATION
     Route: 065

REACTIONS (8)
  - Diabetes mellitus [Unknown]
  - Cardiac failure congestive [Unknown]
  - Deep vein thrombosis [Unknown]
  - Blood disorder [Unknown]
  - Neuropathy peripheral [Unknown]
  - Balance disorder [Unknown]
  - Pulmonary embolism [Unknown]
  - Tinnitus [Unknown]
